FAERS Safety Report 9849887 (Version 1)
Quarter: 2014Q1

REPORT INFORMATION
  Report Type: Spontaneous
  Country: DE (occurrence: DE)
  Receive Date: 20140128
  Receipt Date: 20140128
  Transmission Date: 20141002
  Serious: Yes (Other)
  Sender: FDA-Public Use
  Company Number: DE-PFIZER INC-2014022273

PATIENT
  Age: 21 Year
  Sex: Female

DRUGS (1)
  1. DEPO-CLINOVIR [Suspect]
     Dosage: UNK
     Dates: start: 2011

REACTIONS (3)
  - Cystitis [Unknown]
  - Vaginal disorder [Unknown]
  - Sleep disorder [Unknown]
